FAERS Safety Report 6664504-3 (Version None)
Quarter: 2010Q2

REPORT INFORMATION
  Report Type: 
  Country: None (occurrence: None)
  Receive Date: 20100401
  Receipt Date: 20100329
  Transmission Date: 20101027
  Serious: Yes (Death)
  Sender: FDA-Public Use
  Company Number: US-GILEAD-2010-0027595

PATIENT
  Sex: Female
  Weight: 72.64 kg

DRUGS (5)
  1. LETAIRIS [Suspect]
     Indication: PULMONARY ARTERIAL HYPERTENSION
     Route: 048
     Dates: start: 20090603
  2. PRISTIQ [Concomitant]
  3. VALTREX [Concomitant]
  4. NEXIUM [Concomitant]
  5. ARIMIDEX [Concomitant]

REACTIONS (1)
  - DEATH [None]
